FAERS Safety Report 4549779-9 (Version None)
Quarter: 2004Q4

REPORT INFORMATION
  Report Type: 
  Country: None (occurrence: None)
  Receive Date: 20041227
  Receipt Date: 20041026
  Transmission Date: 20050328
  Serious: No
  Sender: FDA-Public Use
  Company Number: 04P-163-0279120-00

PATIENT
  Age: 39 Year
  Sex: Female
  Weight: 111.3 kg

DRUGS (5)
  1. HUMIRA [Suspect]
     Indication: RHEUMATOID ARTHRITIS
     Dosage: 40 MG, 1 IN 2 WK, SUBCUTANEOUS
     Route: 058
     Dates: start: 20040801, end: 20040801
  2. PROTONIC [Concomitant]
  3. OXYCOCET [Concomitant]
  4. LEVOTHYROXINE SODIUM [Concomitant]
  5. ALPRAZOLAM [Concomitant]

REACTIONS (1)
  - CHEST PAIN [None]
